FAERS Safety Report 11809826 (Version 1)
Quarter: 2015Q4

REPORT INFORMATION
  Report Type: Spontaneous
  Country: CA (occurrence: CA)
  Receive Date: 20151208
  Receipt Date: 20151208
  Transmission Date: 20160305
  Serious: Yes (Hospitalization)
  Sender: FDA-Public Use
  Company Number: CA-MACLEODS PHARMA UK LTD-MAC2015002209

PATIENT

DRUGS (3)
  1. DONEPEZIL. [Suspect]
     Active Substance: DONEPEZIL
     Indication: DEMENTIA ALZHEIMER^S TYPE
     Dosage: 5 MG, DAILY
     Route: 065
  2. DONEPEZIL. [Suspect]
     Active Substance: DONEPEZIL
     Dosage: 10 MG, DAILY
     Route: 065
  3. DULOXETINE. [Suspect]
     Active Substance: DULOXETINE
     Indication: FIBROMYALGIA
     Dosage: 30 MG, DAILY
     Route: 065

REACTIONS (23)
  - Jealous delusion [Recovered/Resolved]
  - Hypersexuality [Recovered/Resolved]
  - Tearfulness [Recovered/Resolved]
  - Judgement impaired [Recovered/Resolved]
  - Aggression [Recovered/Resolved]
  - Irritability [Recovered/Resolved]
  - Flight of ideas [Recovered/Resolved]
  - Disorientation [Recovered/Resolved]
  - Agitation [Recovered/Resolved]
  - Psychotic disorder [Recovered/Resolved]
  - Abnormal behaviour [Recovered/Resolved]
  - Pressure of speech [Recovered/Resolved]
  - Delusion [Recovered/Resolved]
  - Loose associations [Recovered/Resolved]
  - Cognitive disorder [Recovered/Resolved]
  - Drug level increased [Recovered/Resolved]
  - Drug interaction [Recovered/Resolved]
  - Euphoric mood [Recovered/Resolved]
  - Affect lability [Recovered/Resolved]
  - Mania [Recovered/Resolved]
  - Grandiosity [Recovered/Resolved]
  - Anosognosia [Recovered/Resolved]
  - Insomnia [Recovered/Resolved]
